FAERS Safety Report 8843901 (Version 1)
Quarter: 2012Q4

REPORT INFORMATION
  Report Type: 
  Country: US (occurrence: US)
  Receive Date: 20121016
  Receipt Date: 20121016
  Transmission Date: 20130627
  Serious: No
  Sender: FDA-Public Use
  Company Number: US-B.I. PHARMACEUTICALS,INC./RIDGEFIELD-2012-BP-25638BP

PATIENT
  Sex: Male
  Weight: 82 kg

DRUGS (5)
  1. PRADAXA [Suspect]
     Indication: ATRIAL FIBRILLATION
     Dosage: 150 mg
     Route: 048
     Dates: start: 20121011, end: 20121015
  2. BETAPACE [Concomitant]
     Indication: ARRHYTHMIA
     Route: 048
     Dates: start: 20121011
  3. ALTACE [Concomitant]
     Indication: ARRHYTHMIA
     Dosage: 5 mg
     Route: 048
     Dates: start: 20121011
  4. NORVASC [Concomitant]
     Indication: CARDIAC DISORDER
     Dosage: 10 mg
     Route: 048
     Dates: start: 1992
  5. ASPIRIN [Concomitant]
     Indication: THROMBOSIS PROPHYLAXIS
     Dosage: 81 mg
     Route: 048
     Dates: start: 20121011

REACTIONS (3)
  - Dysphagia [Not Recovered/Not Resolved]
  - Chest pain [Not Recovered/Not Resolved]
  - Oesophagitis [Not Recovered/Not Resolved]
